FAERS Safety Report 8294164-X (Version None)
Quarter: 2012Q2

REPORT INFORMATION
  Report Type: 
  Country: None (occurrence: None)
  Receive Date: 20120418
  Receipt Date: 20120413
  Transmission Date: 20120825
  Serious: Yes (Other)
  Sender: FDA-Public Use
  Company Number: PHEH2012US007979

PATIENT
  Sex: Male

DRUGS (5)
  1. VIMPAT [Concomitant]
  2. METOPROLOL TARTRATE [Concomitant]
  3. ZONISAMIDE [Concomitant]
  4. TEGRETOL [Suspect]
  5. TEGRETOL [Suspect]
     Dosage: 200 MG, UNK

REACTIONS (1)
  - CONVULSION [None]
